FAERS Safety Report 4339614-6 (Version None)
Quarter: 2004Q1

REPORT INFORMATION
  Report Type: 
  Country: None (occurrence: None)
  Receive Date: 20040329
  Receipt Date: 20040107
  Transmission Date: 20041129
  Serious: No
  Sender: FDA-Public Use
  Company Number: 04P-163-0246406-00

PATIENT
  Age: 54 Year
  Sex: Female
  Weight: 112.4921 kg

DRUGS (11)
  1. HUMIRA [Suspect]
     Indication: RHEUMATOID ARTHRITIS
     Dosage: 40 MCG, 1 IN 2 WK, SUBCUTANEOUS
     Route: 058
     Dates: start: 20031112
  2. HUMIRA [Suspect]
     Indication: FIBROMYALGIA
  3. METHOTREXATE [Concomitant]
  4. LEVOTHYROXINE SODIUM [Concomitant]
  5. METHYLPREDNISOLONE [Concomitant]
  6. RANITIDINE HYDROCHLORIDE [Concomitant]
  7. OXYCOCET [Concomitant]
  8. ALBUTEROL SULFATE [Concomitant]
  9. MYCELEX [Concomitant]
  10. PRENATAL VITAMINS [Concomitant]
  11. FOLIC ACID [Concomitant]

REACTIONS (3)
  - BLOOD GLUCOSE INCREASED [None]
  - BONE PAIN [None]
  - DRUG INEFFECTIVE [None]
